FAERS Safety Report 6816530-9 (Version None)
Quarter: 2010Q2

REPORT INFORMATION
  Report Type: 
  Country: None (occurrence: None)
  Receive Date: 20100630
  Receipt Date: 20100621
  Transmission Date: 20101027
  Serious: Yes (Hospitalization)
  Sender: FDA-Public Use
  Company Number: 8052224

PATIENT
  Sex: Male
  Weight: 76 kg

DRUGS (3)
  1. CERTOLIZUMAB PEGOL (CERTOLIZUMAB PEGOL) [Suspect]
     Indication: CROHN'S DISEASE
     Dosage: (400 MG 1X/2 WEEKS SUBCUTANEOUS)
     Route: 058
     Dates: start: 20080625, end: 20090806
  2. IMURAN [Concomitant]
  3. KLION [Concomitant]

REACTIONS (3)
  - GASTROINTESTINAL DISORDER [None]
  - HEPATOMEGALY [None]
  - INFECTIOUS MONONUCLEOSIS [None]
